FAERS Safety Report 5386222-4 (Version None)
Quarter: 2007Q3

REPORT INFORMATION
  Report Type: 
  Country: None (occurrence: None)
  Receive Date: 20070713
  Receipt Date: 20070705
  Transmission Date: 20080115
  Serious: Yes (Other)
  Sender: FDA-Public Use
  Company Number: PHNU2007DE02425

PATIENT

DRUGS (1)
  1. SANDOSTATIN [Suspect]
     Indication: CHYLOTHORAX
     Dosage: 0.5 TO  4 A?G PER HOUR AND KG BODY WEIGHT
     Route: 042

REACTIONS (2)
  - FLUID RETENTION [None]
  - METABOLIC ACIDOSIS [None]
